FAERS Safety Report 14812602 (Version 1)
Quarter: 2018Q2

REPORT INFORMATION
  Report Type: Spontaneous
  Country: CA (occurrence: CA)
  Receive Date: 20180425
  Receipt Date: 20180425
  Transmission Date: 20180711
  Serious: Yes (Other)
  Sender: FDA-Public Use
  Company Number: CA-BAXTER-2018BAX011875

PATIENT
  Age: 21 Year
  Sex: Male

DRUGS (9)
  1. METHYLPREDNISOLONE. [Suspect]
     Active Substance: METHYLPREDNISOLONE
     Indication: PRODUCT USED FOR UNKNOWN INDICATION
     Route: 042
  2. PHENYTOIN. [Suspect]
     Active Substance: PHENYTOIN
     Indication: SEIZURE
     Route: 065
  3. PHENOBARBITAL. [Suspect]
     Active Substance: PHENOBARBITAL
     Indication: SEIZURE
     Dosage: DOSAGE FORM NOT SPECIFIED
     Route: 042
  4. FORANE [Suspect]
     Active Substance: ISOFLURANE
     Indication: SEIZURE
     Route: 065
  5. APO-VALPROIC [Suspect]
     Active Substance: VALPROIC ACID
     Indication: SEIZURE
     Route: 065
  6. PROPOFOL. [Suspect]
     Active Substance: PROPOFOL
     Indication: SEIZURE
     Dosage: EMULSION
     Route: 065
  7. LACOSAMIDE. [Suspect]
     Active Substance: LACOSAMIDE
     Indication: SEIZURE
     Route: 065
  8. MIDAZOLAM HYDROCHLORIDE. [Suspect]
     Active Substance: MIDAZOLAM HYDROCHLORIDE
     Indication: SEIZURE
     Route: 065
  9. APO-LEVETIRACETAM [Suspect]
     Active Substance: LEVETIRACETAM
     Indication: SEIZURE
     Dosage: TABLET
     Route: 065

REACTIONS (13)
  - Pyrexia [Unknown]
  - Superinfection [Unknown]
  - Leukocytosis [Unknown]
  - Drug ineffective [Unknown]
  - Mucosal ulceration [Unknown]
  - Hypotension [Unknown]
  - Intestinal ischaemia [Unknown]
  - Abdominal distension [Unknown]
  - Blood lactic acid increased [Unknown]
  - Necrosis ischaemic [Unknown]
  - Heart rate increased [Unknown]
  - Ileus [Unknown]
  - Systemic inflammatory response syndrome [Unknown]
